FAERS Safety Report 21028525 (Version 1)
Quarter: 2022Q2

REPORT INFORMATION
  Report Type: Spontaneous
  Country: US (occurrence: None)
  Receive Date: 20220630
  Receipt Date: 20220630
  Transmission Date: 20220721
  Serious: No
  Sender: FDA-Public Use
  Company Number: None

PATIENT
  Age: 59 Year
  Sex: Male
  Weight: 91.17 kg

DRUGS (10)
  1. MESNEX [Suspect]
     Active Substance: MESNA
     Indication: Testis cancer
     Dosage: FREQUENCY : EVERY THREE WEEKS;?
     Route: 048
  2. BUSPAR [Concomitant]
     Active Substance: BUSPIRONE HYDROCHLORIDE
  3. CISPLATIN [Concomitant]
     Active Substance: CISPLATIN
  4. CLOMIPRAMINE [Concomitant]
     Active Substance: CLOMIPRAMINE
  5. ETOPOSIDE [Concomitant]
     Active Substance: ETOPOSIDE
  6. FLUVOXAMINE [Concomitant]
     Active Substance: FLUVOXAMINE
  7. IFOSFAMIDE [Concomitant]
     Active Substance: IFOSFAMIDE
  8. ATIVAN [Concomitant]
     Active Substance: LORAZEPAM
  9. ZYPREXA [Concomitant]
     Active Substance: OLANZAPINE
  10. QUETIAPINE [Concomitant]
     Active Substance: QUETIAPINE

REACTIONS (2)
  - Haemoglobin decreased [None]
  - Therapy cessation [None]
